FAERS Safety Report 6417856-3 (Version None)
Quarter: 2009Q4

REPORT INFORMATION
  Report Type: 
  Country: None (occurrence: None)
  Receive Date: 20091028
  Receipt Date: 20091026
  Transmission Date: 20100525
  Serious: Yes (Hospitalization, Congenital Anomaly)
  Sender: FDA-Public Use
  Company Number: A0690848A

PATIENT
  Sex: Male
  Weight: 4.5 kg

DRUGS (5)
  1. PAXIL [Suspect]
     Indication: DEPRESSION
     Dosage: 20MG PER DAY
     Dates: start: 19940101
  2. PAROXETINE HCL [Suspect]
     Indication: ANXIETY
     Dosage: 20MG PER DAY
     Dates: start: 20010101
  3. VITAMIN TAB [Concomitant]
     Dates: start: 20050101, end: 20050101
  4. LIPITOR [Concomitant]
  5. COZAAR [Concomitant]

REACTIONS (8)
  - ATRIAL SEPTAL DEFECT [None]
  - DRUG EXPOSURE DURING PREGNANCY [None]
  - MITRAL VALVE PROLAPSE [None]
  - PATENT DUCTUS ARTERIOSUS [None]
  - PERSISTENT FOETAL CIRCULATION [None]
  - PULMONARY VALVE STENOSIS [None]
  - RESPIRATORY FAILURE [None]
  - VENTRICULAR HYPOPLASIA [None]
